FAERS Safety Report 5389331-9 (Version None)
Quarter: 2007Q3

REPORT INFORMATION
  Report Type: 
  Country: None (occurrence: None)
  Receive Date: 20070703
  Receipt Date: 20070515
  Transmission Date: 20080115
  Serious: No
  Sender: FDA-Public Use
  Company Number: 2006PV022330

PATIENT
  Age: 66 Year
  Sex: Male
  Weight: 101.6057 kg

DRUGS (20)
  1. SYMLIN [Suspect]
     Indication: TYPE 2 DIABETES MELLITUS
     Dosage: 60 MCG;QID;SC : 60 MCG;TID;SC : 30 MCG;BID;SC
     Route: 058
     Dates: start: 20060930, end: 20061001
  2. SYMLIN [Suspect]
     Indication: TYPE 2 DIABETES MELLITUS
     Dosage: 60 MCG;QID;SC : 60 MCG;TID;SC : 30 MCG;BID;SC
     Route: 058
     Dates: start: 20060930
  3. SYMLIN [Suspect]
     Indication: TYPE 2 DIABETES MELLITUS
     Dosage: 60 MCG;QID;SC : 60 MCG;TID;SC : 30 MCG;BID;SC
     Route: 058
     Dates: start: 20061002
  4. SYMLIN [Suspect]
     Dosage: 60 MCG;SC
     Route: 058
     Dates: start: 20060930, end: 20060101
  5. SYMLIN [Suspect]
     Dosage: 120 MG;TID;SC
     Route: 058
     Dates: start: 20061019
  6. SYMLIN [Suspect]
     Dosage: 120 MCG;QID;SC : 60 MCG;QID;SC
     Route: 058
     Dates: start: 20060101
  7. SYMLIN [Suspect]
     Dosage: 120 MCG;QID;SC : 60 MCG;QID;SC
     Route: 058
     Dates: start: 20060101
  8. LANTUS [Concomitant]
  9. NOVOLOG [Concomitant]
  10. BYETTA [Concomitant]
  11. PLAVIX [Concomitant]
  12. TOPROL-XL [Concomitant]
  13. LANOXIN [Concomitant]
  14. DETROL LA [Concomitant]
  15. DIOVAN [Concomitant]
  16. PROTOCHOL [Concomitant]
  17. POTASSIUM CHLORIDE [Concomitant]
  18. SPIRONOLACTONE [Concomitant]
  19. FUROSEMIDE [Concomitant]
  20. STOOL SOFTENER [Concomitant]

REACTIONS (7)
  - BLOOD GLUCOSE DECREASED [None]
  - BLOOD GLUCOSE INCREASED [None]
  - CONSTIPATION [None]
  - INJECTION SITE ERYTHEMA [None]
  - INJECTION SITE PAIN [None]
  - WEIGHT DECREASED [None]
  - WEIGHT INCREASED [None]
